FAERS Safety Report 11527069 (Version 1)
Quarter: 2015Q3

REPORT INFORMATION
  Report Type: Spontaneous
  Country: US (occurrence: US)
  Receive Date: 20150903
  Receipt Date: 20150903
  Transmission Date: 20151125
  Serious: No
  Sender: FDA-Public Use
  Company Number: US-ELI_LILLY_AND_COMPANY-US200912005140

PATIENT
  Sex: Male

DRUGS (1)
  1. HUMALOG [Suspect]
     Active Substance: INSULIN LISPRO
     Indication: BLOOD GLUCOSE FLUCTUATION
     Dosage: 80 U, DAILY (1/D)
     Route: 058

REACTIONS (2)
  - Blood glucose increased [Not Recovered/Not Resolved]
  - Poor quality drug administered [Unknown]

NARRATIVE: CASE EVENT DATE: 20091122
